FAERS Safety Report 15992329 (Version 2)
Quarter: 2019Q1

REPORT INFORMATION
  Report Type: Spontaneous
  Country: US (occurrence: US)
  Receive Date: 20190221
  Receipt Date: 20190311
  Transmission Date: 20190418
  Serious: No
  Sender: FDA-Public Use
  Company Number: US-ALLERGAN-1814243US

PATIENT
  Age: 74 Year
  Sex: Female
  Weight: 92.97 kg

DRUGS (1)
  1. OXYTROL FOR WOMEN [Suspect]
     Active Substance: OXYBUTYNIN
     Indication: HYPERTONIC BLADDER
     Dosage: 1 PATCH, CHANGE EVERY 4 DAYS
     Route: 062

REACTIONS (2)
  - Wrong technique in product usage process [Unknown]
  - Product residue present [Unknown]
